FAERS Safety Report 19621984 (Version 6)
Quarter: 2022Q2

REPORT INFORMATION
  Report Type: Report from Study
  Country: US (occurrence: US)
  Receive Date: 20210728
  Receipt Date: 20220404
  Transmission Date: 20220721
  Serious: Yes (Hospitalization)
  Sender: FDA-Public Use
  Company Number: US-NOVARTISPH-NVSC2021US164857

PATIENT
  Age: 51 Year
  Sex: Female
  Weight: 72.5 kg

DRUGS (6)
  1. TREPROSTINIL [Suspect]
     Active Substance: TREPROSTINIL
     Indication: Pulmonary arterial hypertension
     Dosage: 44.8 NG/KG/MIN, CONT
     Route: 042
     Dates: start: 20210207
  2. TREPROSTINIL [Suspect]
     Active Substance: TREPROSTINIL
     Dosage: 44.8 NG/KG/MIN, CONT
     Route: 042
     Dates: start: 20210207
  3. TREPROSTINIL [Suspect]
     Active Substance: TREPROSTINIL
     Dosage: 44.8 NG/KG/MIN, CONT
     Route: 042
     Dates: start: 20210207
  4. ADEMPAS [Concomitant]
     Active Substance: RIOCIGUAT
     Indication: Product used for unknown indication
     Dosage: UNK
     Route: 065
  5. XARELTO [Concomitant]
     Active Substance: RIVAROXABAN
     Indication: Product used for unknown indication
     Dosage: UNK
     Route: 065
  6. LETAIRIS [Concomitant]
     Active Substance: AMBRISENTAN
     Indication: Product used for unknown indication
     Dosage: UNK
     Route: 065

REACTIONS (7)
  - Pneumonia bacterial [Unknown]
  - Nerve compression [Unknown]
  - Pain in extremity [Unknown]
  - Chest pain [Unknown]
  - Device occlusion [Unknown]
  - Arthropathy [Unknown]
  - Headache [Unknown]

NARRATIVE: CASE EVENT DATE: 20210801
